FAERS Safety Report 8386602-9 (Version None)
Quarter: 2012Q2

REPORT INFORMATION
  Report Type: 
  Country: None (occurrence: None)
  Receive Date: 20120525
  Receipt Date: 20120214
  Transmission Date: 20120825
  Serious: No
  Sender: FDA-Public Use
  Company Number: US-GLAXOSMITHKLINE-A0965893A

PATIENT
  Age: 69 Year
  Sex: Female

DRUGS (12)
  1. MAGNESIUM [Concomitant]
  2. SALINE NASAL SPRAY [Concomitant]
  3. SIMVASTATIN [Concomitant]
  4. VERAMYST [Suspect]
     Indication: SINUS DISORDER
     Dosage: 2SPR PER DAY
     Route: 045
     Dates: start: 20110101
  5. AMLODIPINE BESYLATE [Concomitant]
  6. METOPROLOL TARTRATE [Concomitant]
  7. WARFARIN SODIUM [Concomitant]
  8. VITAMIN D2 [Concomitant]
  9. OMEPRAZOLE [Concomitant]
  10. FUROSEMIDE [Concomitant]
  11. LOSARTAN POTASSIUM [Concomitant]
  12. IRON [Concomitant]

REACTIONS (1)
  - EPISTAXIS [None]
